FAERS Safety Report 8914094 (Version 1)
Quarter: 2012Q4

REPORT INFORMATION
  Report Type: Report from Study
  Country: ES (occurrence: ES)
  Receive Date: 20121119
  Receipt Date: 20121119
  Transmission Date: 20130627
  Serious: Yes (Hospitalization)
  Sender: FDA-Public Use
  Company Number: ES-BRISTOL-MYERS SQUIBB COMPANY-17112350

PATIENT
  Age: 63 Year
  Sex: Female

DRUGS (3)
  1. PACLITAXEL [Suspect]
     Indication: BREAST CANCER
     Dates: start: 20120904, end: 20120918
  2. HERCEPTIN [Suspect]
     Indication: BREAST CANCER
     Dosage: 1df=736 units NOS
     Dates: start: 20120904, end: 20120904
  3. ENALAPRIL [Concomitant]
     Dosage: 1df=20/12.5mg

REACTIONS (1)
  - Renal failure acute [Recovered/Resolved with Sequelae]
